FAERS Safety Report 8433509-4 (Version None)
Quarter: 2012Q2

REPORT INFORMATION
  Report Type: 
  Country: None (occurrence: None)
  Receive Date: 20120613
  Receipt Date: 20120612
  Transmission Date: 20120825
  Serious: Yes (Hospitalization)
  Sender: FDA-Public Use
  Company Number: BE-BAYER-2012-057977

PATIENT
  Sex: Male

DRUGS (2)
  1. AUGMENTIN '125' [Concomitant]
  2. AVELOX [Suspect]
     Indication: INFECTION

REACTIONS (1)
  - ENTEROCOLITIS HAEMORRHAGIC [None]
